FAERS Safety Report 5533345-2 (Version None)
Quarter: 2007Q4

REPORT INFORMATION
  Report Type: 
  Country: None (occurrence: None)
  Receive Date: 20071204
  Receipt Date: 20071120
  Transmission Date: 20080405
  Serious: Yes (Death)
  Sender: FDA-Public Use
  Company Number: LB-JNJFOC-20071200502

PATIENT
  Age: 20 Year
  Sex: Male

DRUGS (2)
  1. TRAMADOL HCL [Suspect]
     Indication: DRUG USE FOR UNKNOWN INDICATION
     Route: 065
  2. HEROINE [Suspect]
     Indication: DRUG USE FOR UNKNOWN INDICATION
     Dosage: HALF A SYRINGE (SYRINGE SIZE NOT REPORTED)
     Route: 042

REACTIONS (2)
  - DEPENDENCE [None]
  - INTENTIONAL OVERDOSE [None]
